FAERS Safety Report 25836174 (Version 1)
Quarter: 2025Q3

REPORT INFORMATION
  Report Type: Spontaneous
  Country: EU (occurrence: EU)
  Receive Date: 20250923
  Receipt Date: 20250923
  Transmission Date: 20251020
  Serious: Yes (Life-Threatening)
  Sender: AUROBINDO
  Company Number: EU-AFSSAPS-AN2025001148

PATIENT
  Age: 70 Year
  Sex: Female

DRUGS (3)
  1. HYDROCORTISONE [Suspect]
     Active Substance: HYDROCORTISONE
     Indication: Hypopituitarism
     Dosage: 10 MILLIGRAM, ONCE A DAY
     Route: 048
  2. LEVOTHYROXINE [Suspect]
     Active Substance: LEVOTHYROXINE
     Indication: Hypopituitarism
     Dosage: 1 DOSAGE FORM, ONCE A DAY
     Route: 048
  3. MINIRIN [Suspect]
     Active Substance: DESMOPRESSIN ACETATE
     Indication: Hypopituitarism
     Dosage: 180 MICROGRAM, ONCE A DAY
     Route: 060

REACTIONS (3)
  - Condition aggravated [Recovered/Resolved]
  - Transcription medication error [Recovered/Resolved]
  - Product dose omission in error [Recovered/Resolved]

NARRATIVE: CASE EVENT DATE: 20250619
